FAERS Safety Report 11328361 (Version 2)
Quarter: 2015Q4

REPORT INFORMATION
  Report Type: Other
  Country: GB (occurrence: GB)
  Receive Date: 20150731
  Receipt Date: 20151005
  Transmission Date: 20160304
  Serious: Yes (Other)
  Sender: FDA-Public Use
  Company Number: GB-MYLANLABS-2015M1024883

PATIENT

DRUGS (6)
  1. ATENOLOL. [Concomitant]
     Active Substance: ATENOLOL
     Dosage: 1 DF, QD
     Dates: start: 20141125
  2. DIPROBASE                          /01210201/ [Concomitant]
     Dosage: USE OFTEN
     Dates: start: 20150619
  3. BECLOMETASONE [Concomitant]
     Active Substance: BECLOMETHASONE DIPROPIONATE
     Dosage: 2 DF, BID
     Dates: start: 20141030
  4. CHLORPHENAMINE [Concomitant]
     Active Substance: CHLORPHENIRAMINE MALEATE
     Dosage: 1 DF, TAKE ONE EVERY 4-6 HOURS
     Dates: start: 20150618, end: 20150625
  5. IRBESARTAN. [Suspect]
     Active Substance: IRBESARTAN
     Dosage: 150 MG, UNK
     Dates: start: 20150318
  6. APROVEL [Concomitant]
     Active Substance: IRBESARTAN
     Dosage: 1 DF, QD
     Dates: start: 20150424, end: 20150625

REACTIONS (2)
  - Vasculitic rash [Recovered/Resolved]
  - Cutaneous vasculitis [Recovered/Resolved]

NARRATIVE: CASE EVENT DATE: 20150710
